FAERS Safety Report 5349220-2 (Version None)
Quarter: 2007Q2

REPORT INFORMATION
  Report Type: 
  Country: None (occurrence: None)
  Receive Date: 20070607
  Receipt Date: 20070516
  Transmission Date: 20071010
  Serious: No
  Sender: FDA-Public Use
  Company Number: GB-AVENTIS-200714590GDDC

PATIENT
  Age: 24 Year
  Sex: Female

DRUGS (1)
  1. ARAVA [Suspect]
     Dosage: DOSE: UNK

REACTIONS (1)
  - DRUG EXPOSURE DURING PREGNANCY [None]
